FAERS Safety Report 7471915-5 (Version None)
Quarter: 2011Q2

REPORT INFORMATION
  Report Type: 
  Country: None (occurrence: None)
  Receive Date: 20110511
  Receipt Date: 20100706
  Transmission Date: 20111010
  Serious: No
  Sender: FDA-Public Use
  Company Number: A0870279A

PATIENT
  Age: 86 Year
  Sex: Female
  Weight: 52.3 kg

DRUGS (1)
  1. TYKERB [Suspect]
     Dosage: 1000MG PER DAY
     Route: 048
     Dates: start: 20100704, end: 20100709

REACTIONS (4)
  - WEIGHT DECREASED [None]
  - DIARRHOEA [None]
  - DEHYDRATION [None]
  - VOMITING [None]
